FAERS Safety Report 25318715 (Version 3)
Quarter: 2025Q3

REPORT INFORMATION
  Report Type: Report from Study
  Country: GB (occurrence: GB)
  Receive Date: 20250515
  Receipt Date: 20250819
  Transmission Date: 20251020
  Serious: Yes (Congenital Anomaly)
  Sender: HETERO
  Company Number: GB-AMAROX PHARMA-AMR2025GB02138

PATIENT
  Sex: Male
  Weight: 2.73 kg

DRUGS (4)
  1. EMTRICITABINE\TENOFOVIR [Suspect]
     Active Substance: EMTRICITABINE\TENOFOVIR
     Indication: Product used for unknown indication
     Route: 064
     Dates: start: 20240912, end: 20241201
  2. BECLOMETHASONE DIPROPIONATE [Suspect]
     Active Substance: BECLOMETHASONE DIPROPIONATE
     Indication: Product used for unknown indication
     Route: 065
  3. ALBUTEROL [Suspect]
     Active Substance: ALBUTEROL
     Indication: Product used for unknown indication
     Route: 065
  4. PROGESTERONE [Suspect]
     Active Substance: PROGESTERONE
     Indication: Product used for unknown indication
     Route: 065

REACTIONS (2)
  - Fallot^s tetralogy [Unknown]
  - Foetal exposure during pregnancy [Unknown]
